FAERS Safety Report 14150221 (Version 1)
Quarter: 2017Q4

REPORT INFORMATION
  Report Type: Spontaneous
  Country: US (occurrence: US)
  Receive Date: 20171101
  Receipt Date: 20171101
  Transmission Date: 20180321
  Serious: No
  Sender: FDA-Public Use
  Company Number: US-NOVOPROD-526213

PATIENT
  Age: 68 Year
  Sex: Female

DRUGS (1)
  1. VAGIFEM LD [Suspect]
     Active Substance: ESTRADIOL
     Indication: PRODUCT USED FOR UNKNOWN INDICATION
     Route: 067
     Dates: start: 2010

REACTIONS (5)
  - Malaise [Not Recovered/Not Resolved]
  - Product quality issue [Recovered/Resolved]
  - Urine output increased [Recovered/Resolved]
  - Product use issue [Not Recovered/Not Resolved]
  - Drug ineffective [Recovered/Resolved]

NARRATIVE: CASE EVENT DATE: 2012
